FAERS Safety Report 13458201 (Version 1)
Quarter: 2017Q2

REPORT INFORMATION
  Report Type: Spontaneous
  Country: US (occurrence: US)
  Receive Date: 20170419
  Receipt Date: 20170419
  Transmission Date: 20170830
  Serious: No
  Sender: FDA-Public Use
  Company Number: US-BAYER-2017-075320

PATIENT
  Age: 66 Year
  Sex: Male
  Weight: 94.97 kg

DRUGS (1)
  1. MIRALAX [Suspect]
     Active Substance: POLYETHYLENE GLYCOL 3350
     Indication: GASTROINTESTINAL DISORDER
     Dosage: UNK, PRN
     Route: 048
     Dates: end: 20170418

REACTIONS (3)
  - Poor quality drug administered [Unknown]
  - Product physical issue [None]
  - Product use issue [Unknown]
